FAERS Safety Report 14583163 (Version 1)
Quarter: 2018Q1

REPORT INFORMATION
  Report Type: Report from Study
  Country: AU (occurrence: AU)
  Receive Date: 20180228
  Receipt Date: 20180228
  Transmission Date: 20180509
  Serious: Yes (Hospitalization)
  Sender: FDA-Public Use
  Company Number: AU-MYLANLABS-2018M1013965

PATIENT
  Age: 61 Year
  Sex: Male

DRUGS (1)
  1. CLOZARIL [Suspect]
     Active Substance: CLOZAPINE
     Indication: SCHIZOPHRENIA
     Dosage: UNK, QD
     Route: 048

REACTIONS (9)
  - Delirium [Recovered/Resolved]
  - Urinary retention [Recovered/Resolved]
  - Extra dose administered [Unknown]
  - Troponin increased [Unknown]
  - Constipation [Recovered/Resolved]
  - Drug dose omission [Unknown]
  - C-reactive protein decreased [Unknown]
  - Antipsychotic drug level increased [Unknown]
  - Dizziness [Recovered/Resolved]

NARRATIVE: CASE EVENT DATE: 201801
